FAERS Safety Report 5194638-4 (Version None)
Quarter: 2006Q4

REPORT INFORMATION
  Report Type: 
  Country: None (occurrence: None)
  Receive Date: 20061222
  Receipt Date: 20061222
  Transmission Date: 20070319
  Serious: Yes (Life-Threatening, Other)
  Sender: FDA-Public Use
  Company Number: None

PATIENT
  Age: 16 Year
  Sex: Male
  Weight: 63.5036 kg

DRUGS (2)
  1. SOTRET [Suspect]
     Indication: ACNE
     Dosage: 30 MG TWICE A DAY PO
     Route: 048
     Dates: start: 20061201, end: 20061204
  2. AMNESTEEM [Suspect]
     Indication: ACNE
     Dosage: 30 MG ONCE A DAY PO
     Route: 048
     Dates: start: 20060930, end: 20061130

REACTIONS (8)
  - AGGRESSION [None]
  - ANGER [None]
  - CRYING [None]
  - DEPRESSED MOOD [None]
  - DEPRESSION [None]
  - DISTURBANCE IN ATTENTION [None]
  - EDUCATIONAL PROBLEM [None]
  - PERSONALITY CHANGE [None]
